FAERS Safety Report 11583202 (Version 2)
Quarter: 2016Q1

REPORT INFORMATION
  Report Type: Spontaneous
  Country: US (occurrence: US)
  Receive Date: 20151001
  Receipt Date: 20160202
  Transmission Date: 20160525
  Serious: Yes (Hospitalization, Other)
  Sender: FDA-Public Use
  Company Number: US-ELI_LILLY_AND_COMPANY-US201509007317

PATIENT
  Age: 51 Year
  Sex: Male

DRUGS (2)
  1. AXIRON [Suspect]
     Active Substance: TESTOSTERONE
     Indication: ANDROGEN REPLACEMENT THERAPY
     Dosage: UNK, UNKNOWN
     Route: 065
     Dates: start: 200610, end: 201309
  2. TESTOSTERONE ENANTHATE. [Concomitant]
     Active Substance: TESTOSTERONE ENANTHATE
     Dosage: UNK, WEEKLY (1/W)
     Route: 065
     Dates: start: 2006, end: 2011

REACTIONS (3)
  - Pulmonary embolism [Unknown]
  - Coronary artery disease [Unknown]
  - Pain [Unknown]

NARRATIVE: CASE EVENT DATE: 201309
